FAERS Safety Report 24891081 (Version 3)
Quarter: 2025Q1

REPORT INFORMATION
  Report Type: Spontaneous
  Country: US (occurrence: US)
  Receive Date: 20250127
  Receipt Date: 20250331
  Transmission Date: 20250409
  Serious: Yes (Other)
  Sender: SANOFI AVENTIS
  Company Number: US-SA-2025SA024411

PATIENT
  Age: 39 Year
  Sex: Female

DRUGS (1)
  1. DUPIXENT [Suspect]
     Active Substance: DUPILUMAB
     Indication: Eosinophilic oesophagitis
     Dosage: 300MG, QW
     Route: 058

REACTIONS (10)
  - Precancerous condition [Unknown]
  - Dysphagia [Unknown]
  - Illness [Unknown]
  - Cystitis interstitial [Unknown]
  - Discomfort [Unknown]
  - Pain [Unknown]
  - Sensitive skin [Unknown]
  - Eosinophilic oesophagitis [Unknown]
  - Accidental exposure to product [Unknown]
  - Exposure via skin contact [Unknown]
